FAERS Safety Report 4506697-X (Version None)
Quarter: 2004Q4

REPORT INFORMATION
  Report Type: 
  Country: None (occurrence: None)
  Receive Date: 20041117
  Receipt Date: 20041101
  Transmission Date: 20050328
  Serious: Yes (Death, Hospitalization)
  Sender: FDA-Public Use
  Company Number: 206198

PATIENT
  Age: 57 Year
  Sex: Female
  Weight: 136.0791 kg

DRUGS (1)
  1. AVONEX [Suspect]
     Indication: MULTIPLE SCLEROSIS
     Dates: end: 20030101

REACTIONS (5)
  - ATRIAL FIBRILLATION [None]
  - CARDIOPULMONARY FAILURE [None]
  - ECONOMIC PROBLEM [None]
  - HEPATIC FAILURE [None]
  - VENTRICULAR TACHYCARDIA [None]
